FAERS Safety Report 8071963-0 (Version None)
Quarter: 2012Q1

REPORT INFORMATION
  Report Type: 
  Country: None (occurrence: None)
  Receive Date: 20120119
  Receipt Date: 20120109
  Transmission Date: 20120608
  Serious: Yes (Hospitalization, Other)
  Sender: FDA-Public Use
  Company Number: DSJ-2011-21233

PATIENT
  Age: 8 Decade
  Sex: Female

DRUGS (5)
  1. ALISKIREN/HYDROCHLOROTHIAZIDE (ALISKIREN AND HYDROCHLOROTHIAZIDE) (ALI [Concomitant]
  2. BENICAR HCT [Suspect]
     Indication: HYPERTENSION
     Dosage: SEE IMAGE
     Route: 048
     Dates: start: 20110801
  3. BENICAR HCT [Suspect]
     Indication: HYPERTENSION
     Dosage: SEE IMAGE
     Route: 048
     Dates: start: 20090101, end: 20110801
  4. ACETYLSALICYLIC ACID/ISOSORBIDE [Concomitant]
  5. MEDICINE FOR CARDIAC DISORDER [Concomitant]

REACTIONS (5)
  - DRUG INEFFECTIVE [None]
  - BLOOD PRESSURE SYSTOLIC INCREASED [None]
  - OVERDOSE [None]
  - VISUAL IMPAIRMENT [None]
  - INSOMNIA [None]
